FAERS Safety Report 23358596 (Version 1)
Quarter: 2024Q1

REPORT INFORMATION
  Report Type: Spontaneous
  Country: None (occurrence: FR)
  Receive Date: 20240102
  Receipt Date: 20240102
  Transmission Date: 20240410
  Serious: Yes (Hospitalization)
  Sender: FDA-Public Use
  Company Number: FR-B.Braun Medical Inc.-2150068

PATIENT
  Age: 63 Year
  Sex: Male
  Weight: 118.5 kg

DRUGS (7)
  1. MAGNESIUM SULFATE IN DEXTROSE [Suspect]
     Active Substance: MAGNESIUM SULFATE
     Indication: Mineral supplementation
     Route: 042
  2. POTASSIUM CHLORIDE [Suspect]
     Active Substance: POTASSIUM CHLORIDE
  3. SODIUM CHLORIDE [Suspect]
     Active Substance: SODIUM CHLORIDE
  4. CALCIUM CHLORIDE [Suspect]
     Active Substance: CALCIUM CHLORIDE
  5. NICOTINAMIDE [Suspect]
     Active Substance: NIACINAMIDE
  6. PYRIDOXINE [Suspect]
     Active Substance: PYRIDOXINE
  7. THIAMINE [Suspect]
     Active Substance: THIAMINE

REACTIONS (4)
  - Injection site extravasation [None]
  - Injection site necrosis [None]
  - Drug interaction [None]
  - Off label use [None]
